FAERS Safety Report 13739204 (Version 1)
Quarter: 2017Q3

REPORT INFORMATION
  Report Type: Spontaneous
  Country: US (occurrence: US)
  Receive Date: 20170710
  Receipt Date: 20170710
  Transmission Date: 20171127
  Serious: Yes (Other)
  Sender: FDA-Public Use
  Company Number: US-SAOL THERAPEUTICS-2017SAO00973

PATIENT
  Age: 58 Year
  Sex: Female

DRUGS (3)
  1. BACLOFEN. [Suspect]
     Active Substance: BACLOFEN
     Indication: PARAPARESIS
  2. BACLOFEN. [Suspect]
     Active Substance: BACLOFEN
  3. BACLOFEN. [Suspect]
     Active Substance: BACLOFEN
     Indication: MUSCLE SPASTICITY
     Dosage: 649 ?G, \DAY
     Route: 037

REACTIONS (7)
  - Cerebrospinal fluid leakage [Not Recovered/Not Resolved]
  - Drug withdrawal syndrome [Unknown]
  - Muscle spasms [Not Recovered/Not Resolved]
  - Therapeutic response decreased [Unknown]
  - Device leakage [Unknown]
  - Sleep disorder [Unknown]
  - Device malfunction [Unknown]

NARRATIVE: CASE EVENT DATE: 201704
